FAERS Safety Report 10716156 (Version 3)
Quarter: 2015Q3

REPORT INFORMATION
  Report Type: Report from Study
  Country: US (occurrence: US)
  Receive Date: 20150116
  Receipt Date: 20150706
  Transmission Date: 20151125
  Serious: Yes (Hospitalization)
  Sender: FDA-Public Use
  Company Number: US-JNJFOC-20150107659

PATIENT
  Age: 18 Year
  Sex: Female
  Weight: 56.9 kg

DRUGS (12)
  1. REMICADE [Suspect]
     Active Substance: INFLIXIMAB
     Indication: CROHN^S DISEASE
     Route: 042
     Dates: start: 20131231, end: 20140117
  2. PANTOPRAZOLE [Concomitant]
     Active Substance: PANTOPRAZOLE SODIUM
     Route: 065
  3. ACETAMINOPHEN. [Concomitant]
     Active Substance: ACETAMINOPHEN
     Route: 065
  4. LOPERAMIDE [Concomitant]
     Active Substance: LOPERAMIDE
     Route: 065
  5. PSYLLIUM [Concomitant]
     Active Substance: PLANTAGO SEED
     Route: 065
  6. ONDANSETRON [Concomitant]
     Active Substance: ONDANSETRON
     Route: 065
  7. OXYCODONE [Concomitant]
     Active Substance: OXYCODONE
     Route: 065
  8. REMICADE [Suspect]
     Active Substance: INFLIXIMAB
     Indication: CROHN^S DISEASE
     Route: 042
     Dates: start: 20110630
  9. 5-ASA [Concomitant]
     Active Substance: MESALAMINE
     Route: 048
  10. HUMIRA [Concomitant]
     Active Substance: ADALIMUMAB
     Route: 065
     Dates: start: 20140410
  11. LORAZEPAM. [Concomitant]
     Active Substance: LORAZEPAM
     Route: 065
  12. LITHIUM. [Concomitant]
     Active Substance: LITHIUM
     Route: 065

REACTIONS (2)
  - Crohn^s disease [Recovered/Resolved with Sequelae]
  - Dehydration [Recovered/Resolved]

NARRATIVE: CASE EVENT DATE: 20141204
